FAERS Safety Report 10244112 (Version 1)
Quarter: 2014Q2

REPORT INFORMATION
  Report Type: Spontaneous
  Country: IR (occurrence: None)
  Receive Date: 20140616
  Receipt Date: 20140616
  Transmission Date: 20141212
  Serious: Yes (Hospitalization)
  Sender: FDA-Public Use
  Company Number: FK201402339

PATIENT
  Age: 40 Year
  Sex: Female

DRUGS (3)
  1. OXALIPLATIN [Suspect]
     Indication: METASTATIC NEOPLASM
  2. FLUOROURACIL (FLUOROURACIL) [Concomitant]
  3. LEUCOVORIN CALCIUM (CALCIUM FOLINATE) [Concomitant]

REACTIONS (3)
  - Renal tubular disorder [None]
  - Tubulointerstitial nephritis [None]
  - Haemodialysis [None]
